FAERS Safety Report 9675789 (Version 2)
Quarter: 2014Q1

REPORT INFORMATION
  Report Type: Spontaneous
  Country: US (occurrence: US)
  Receive Date: 20131107
  Receipt Date: 20140110
  Transmission Date: 20141002
  Serious: Yes (Life-Threatening)
  Sender: FDA-Public Use
  Company Number: US-SHIRE-ALL1-2013-07484

PATIENT
  Age: 6 Year
  Sex: Male
  Weight: 21.32 kg

DRUGS (1)
  1. VYVANSE [Suspect]
     Indication: ATTENTION DEFICIT/HYPERACTIVITY DISORDER
     Dosage: 20 MG, 1X/DAY:QD
     Route: 048
     Dates: start: 20130314, end: 20130613

REACTIONS (2)
  - Suicidal ideation [Recovered/Resolved]
  - Social avoidant behaviour [Unknown]
